FAERS Safety Report 7498305-3 (Version None)
Quarter: 2011Q2

REPORT INFORMATION
  Report Type: 
  Country: None (occurrence: None)
  Receive Date: 20110524
  Receipt Date: 20110510
  Transmission Date: 20111010
  Serious: Yes (Other)
  Sender: FDA-Public Use
  Company Number: US-BAYER-2011-041811

PATIENT
  Age: 29 Year
  Sex: Male
  Weight: 70 kg

DRUGS (1)
  1. ALKA-SELTZER PLUS COLD AND COUGH [Suspect]
     Indication: NASOPHARYNGITIS
     Dosage: 2 DF, TID, BOTTLE COUNT 20S
     Route: 048
     Dates: start: 20110509

REACTIONS (3)
  - NASAL CONGESTION [None]
  - MOUTH HAEMORRHAGE [None]
  - TONGUE HAEMORRHAGE [None]
